FAERS Safety Report 7216455-3 (Version None)
Quarter: 2011Q1

REPORT INFORMATION
  Report Type: 
  Country: None (occurrence: None)
  Receive Date: 20110107
  Receipt Date: 20101224
  Transmission Date: 20110831
  Serious: No
  Sender: FDA-Public Use
  Company Number: US-B.I. PHARMACEUTICALS,INC./RIDGEFIELD-2011-BP-00134BP

PATIENT
  Sex: Male

DRUGS (6)
  1. TAMBOCOR [Concomitant]
     Indication: CARDIAC DISORDER
     Dosage: 100 MG
     Route: 048
  2. BACTRIM [Concomitant]
     Indication: SKIN DISORDER
  3. PRADAXA [Suspect]
     Indication: ATRIAL FIBRILLATION
     Dosage: 300 MG
     Route: 048
     Dates: start: 20101201
  4. ENTOCORT EC [Concomitant]
     Indication: CROHN'S DISEASE
     Dosage: 9 MG
     Route: 048
  5. CARDIZEM [Concomitant]
     Indication: TACHYCARDIA
     Dosage: 240 MG
     Route: 048
  6. ACIPHEX [Concomitant]
     Indication: GASTROOESOPHAGEAL REFLUX DISEASE

REACTIONS (2)
  - CONTUSION [None]
  - DYSPNOEA [None]
